FAERS Safety Report 18001048 (Version 1)
Quarter: 2020Q3

REPORT INFORMATION
  Report Type: Spontaneous
  Country: JP (occurrence: JP)
  Receive Date: 20200709
  Receipt Date: 20200709
  Transmission Date: 20201103
  Serious: Yes (Death, Other)
  Sender: FDA-Public Use
  Company Number: JP-PFIZER INC-2020250970

PATIENT
  Age: 84 Year
  Sex: Female

DRUGS (1)
  1. VFEND [Suspect]
     Active Substance: VORICONAZOLE
     Indication: BRONCHOPULMONARY ASPERGILLOSIS
     Dosage: 160 MG, 2X/DAY
     Route: 042
     Dates: start: 20200626, end: 20200629

REACTIONS (3)
  - Infection [Fatal]
  - Hypokalaemia [Unknown]
  - Platelet count decreased [Unknown]
